FAERS Safety Report 9249642 (Version 3)
Quarter: 2013Q3

REPORT INFORMATION
  Report Type: Spontaneous
  Country: US (occurrence: US)
  Receive Date: 20130423
  Receipt Date: 20130924
  Transmission Date: 20140515
  Serious: Yes (Death, Hospitalization)
  Sender: FDA-Public Use
  Company Number: US-B.I. PHARMACEUTICALS,INC./RIDGEFIELD-2013-BI-11021BP

PATIENT
  Age: 76 Year
  Sex: Female
  Weight: 218 kg

DRUGS (14)
  1. PRADAXA [Suspect]
     Indication: ANTICOAGULANT THERAPY
     Dosage: 300 MG
     Route: 048
     Dates: start: 20110106, end: 20120307
  2. PRADAXA [Suspect]
     Indication: ATRIAL FIBRILLATION
  3. ALDACTONE [Concomitant]
     Dosage: 100 MG
     Route: 048
  4. CYMBALTA [Concomitant]
     Dosage: 30 MG
     Route: 048
  5. SYNTHROID [Concomitant]
     Indication: HYPOTHYROIDISM
     Dosage: 125 MCG
     Route: 048
  6. EPLERENONE [Concomitant]
     Dosage: 300 MG
     Route: 048
  7. CLONIDINE [Concomitant]
     Dosage: 0.2 MG
     Route: 048
  8. ZANTAC [Concomitant]
     Dosage: 300 MG
     Route: 048
  9. LASIX [Concomitant]
     Dosage: 40 MG
     Route: 048
  10. METOPROLOL [Concomitant]
     Indication: HYPERTENSION
     Dosage: 25 MG
     Route: 048
  11. AZACTAM [Concomitant]
     Indication: OSTEOMYELITIS CHRONIC
     Dosage: 40 MG
     Route: 042
  12. TYGACIL [Concomitant]
     Indication: OSTEOMYELITIS CHRONIC
     Dosage: 100 MG
  13. ALLOPURINOL [Concomitant]
     Dosage: 300 MG
     Route: 048
  14. LACTOBACILLUS [Concomitant]
     Dosage: 300 MG
     Route: 048

REACTIONS (2)
  - Gastrointestinal haemorrhage [Fatal]
  - Coagulopathy [Unknown]
